FAERS Safety Report 6638748-0 (Version None)
Quarter: 2010Q1

REPORT INFORMATION
  Report Type: 
  Country: None (occurrence: None)
  Receive Date: 20100317
  Receipt Date: 20100303
  Transmission Date: 20100710
  Serious: Yes (Death)
  Sender: FDA-Public Use
  Company Number: US-MYLANLABS-2010S1003515

PATIENT
  Age: 46 Year
  Sex: Male

DRUGS (4)
  1. VORICONAZOLE [Suspect]
     Indication: PROPHYLAXIS
     Route: 065
  2. PREDNISONE [Suspect]
     Indication: WEGENER'S GRANULOMATOSIS
     Route: 065
  3. METHOTREXATE [Suspect]
     Indication: WEGENER'S GRANULOMATOSIS
     Route: 065
  4. AMPHOTERICIN B [Suspect]
     Indication: BRONCHOPULMONARY ASPERGILLOSIS
     Route: 065

REACTIONS (4)
  - BRONCHOPULMONARY ASPERGILLOSIS [None]
  - PHOTOSENSITIVITY REACTION [None]
  - RENAL DISORDER [None]
  - SQUAMOUS CELL CARCINOMA [None]
